FAERS Safety Report 7178402 (Version 6)
Quarter: 2013Q4

REPORT INFORMATION
  Report Type: Report from Study
  Country: CA (occurrence: CA)
  Receive Date: 20091116
  Receipt Date: 20131104
  Transmission Date: 20140711
  Serious: Yes (Other)
  Sender: FDA-Public Use
  Company Number: PHHY2009CA48321

PATIENT
  Age: 43 Year
  Sex: Female

DRUGS (10)
  1. CLOZARIL [Suspect]
     Indication: PSYCHOTIC DISORDER
     Dosage: 375 MG, DAILY
     Route: 048
     Dates: start: 20030514, end: 20091102
  2. CLOZARIL [Suspect]
     Dosage: UNK
     Route: 048
     Dates: start: 20130814
  3. CLOZARIL [Suspect]
     Dosage: 150 MG, QD
     Route: 048
     Dates: start: 20130822, end: 20130904
  4. VALPROIC ACID [Concomitant]
     Dosage: UNK UKN, UNK
  5. CLONAZEPAM [Concomitant]
     Dosage: 0.5 MG, QHS
  6. INFLUENZA VACCINE [Concomitant]
     Dosage: UNK UKN, UNK
     Dates: start: 20091030
  7. DIVALPROEX SODIUM [Concomitant]
     Dosage: 250 MG, 1 TABLET IN THE MORNING AND 2 TABLETS AT NIGHT
  8. BENZTROPINE [Concomitant]
     Dosage: 1 MG, AT NIGHT
  9. LITHIUM [Concomitant]
     Dosage: 900 MG, AT NIGHT
  10. ABILIFY [Concomitant]
     Dosage: 5 MG, AT NIGHT

REACTIONS (6)
  - Cervix carcinoma [Unknown]
  - Idiosyncratic drug reaction [Recovered/Resolved]
  - Agranulocytosis [Unknown]
  - White blood cell count decreased [Not Recovered/Not Resolved]
  - Neutrophil count decreased [Not Recovered/Not Resolved]
  - Nasal congestion [Unknown]
